FAERS Safety Report 8553618-9 (Version None)
Quarter: 2012Q3

REPORT INFORMATION
  Report Type: 
  Country: None (occurrence: None)
  Receive Date: 20120731
  Receipt Date: 20120716
  Transmission Date: 20120928
  Serious: Yes (Hospitalization, Other)
  Sender: FDA-Public Use
  Company Number: KR-BAYER-2012-076439

PATIENT

DRUGS (3)
  1. NAPROXEN SODIUM [Suspect]
  2. DIAZEPAM TAB [Suspect]
  3. SULFAMETHOXAZOLE AND TRIMETHOPRIM [Suspect]

REACTIONS (2)
  - STEVENS-JOHNSON SYNDROME [None]
  - TOXIC EPIDERMAL NECROLYSIS [None]
